FAERS Safety Report 8984870 (Version 1)
Quarter: 2012Q4

REPORT INFORMATION
  Report Type: 
  Country: CN (occurrence: CN)
  Receive Date: 20121226
  Receipt Date: 20121226
  Transmission Date: 20130627
  Serious: Yes (Other)
  Sender: FDA-Public Use
  Company Number: CN-BAYER-2012-133628

PATIENT
  Age: 87 Year
  Sex: Male
  Weight: 66 kg

DRUGS (4)
  1. AVELOX [Suspect]
     Indication: PNEUMONIA BACTERIAL
     Dosage: 0.4 g, QD
     Route: 041
     Dates: start: 20100213, end: 20100315
  2. CILASTATIN [Concomitant]
     Indication: PNEUMONIA
     Dosage: UNK
     Dates: start: 20100219
  3. PIPERACILLIN [Concomitant]
  4. SULBACTAM [Concomitant]

REACTIONS (2)
  - Rash [Recovered/Resolved with Sequelae]
  - Hepatic function abnormal [Recovered/Resolved with Sequelae]
